FAERS Safety Report 5274958-5 (Version None)
Quarter: 2007Q1

REPORT INFORMATION
  Report Type: 
  Country: None (occurrence: None)
  Receive Date: 20061207
  Receipt Date: 20050418
  Transmission Date: 20070707
  Serious: Yes (Other)
  Sender: FDA-Public Use
  Company Number: 2005UW05946

PATIENT
  Age: 54 Year
  Sex: Male

DRUGS (6)
  1. TOPROL-XL [Suspect]
     Dosage: 50 MG QD PO
     Route: 048
  2. TOPROL-XL [Suspect]
     Dosage: 25 MG DAILY PO
     Route: 048
  3. HYDROCHLOROTHIAZIDE [Concomitant]
  4. AVANDIA [Concomitant]
  5. LIPITOR [Concomitant]
  6. ATACAND [Concomitant]

REACTIONS (3)
  - BLOOD PRESSURE DECREASED [None]
  - ILL-DEFINED DISORDER [None]
  - MEDICATION ERROR [None]
